FAERS Safety Report 4620182-6 (Version None)
Quarter: 2005Q1

REPORT INFORMATION
  Report Type: 
  Country: None (occurrence: None)
  Receive Date: 20050323
  Receipt Date: 20050323
  Transmission Date: 20050727
  Serious: Yes (Other)
  Sender: FDA-Public Use
  Company Number: None

PATIENT
  Sex: Female

DRUGS (1)
  1. TRI-PREVIFEM [Suspect]
     Indication: CONTRACEPTION
     Dosage: 1 TABLET    DAILY    ORAL
     Route: 048
     Dates: start: 20050223, end: 20050321

REACTIONS (5)
  - MENORRHAGIA [None]
  - MENSTRUATION IRREGULAR [None]
  - METRORRHAGIA [None]
  - PHARMACEUTICAL PRODUCT COMPLAINT [None]
  - VAGINAL DISCHARGE [None]
